FAERS Safety Report 7112423-0 (Version None)
Quarter: 2010Q4

REPORT INFORMATION
  Report Type: 
  Country: None (occurrence: None)
  Receive Date: 20101119
  Receipt Date: 20101029
  Transmission Date: 20110411
  Serious: No
  Sender: FDA-Public Use
  Company Number: A0889720A

PATIENT
  Age: 59 Year
  Sex: Male

DRUGS (5)
  1. AVODART [Suspect]
     Indication: BENIGN PROSTATIC HYPERPLASIA
     Dosage: 1CAP PER DAY
     Route: 048
  2. SAW PALMETTO [Concomitant]
  3. TUMERIC [Concomitant]
  4. SIMVASTATIN [Concomitant]
  5. NEXIUM [Concomitant]

REACTIONS (2)
  - BLOOD POTASSIUM INCREASED [None]
  - DRUG INTERACTION [None]
